FAERS Safety Report 15119797 (Version 2)
Quarter: 2018Q3

REPORT INFORMATION
  Report Type: Report from Study
  Country: US (occurrence: US)
  Receive Date: 20180709
  Receipt Date: 20180809
  Transmission Date: 20181010
  Serious: Yes (Death, Hospitalization)
  Sender: FDA-Public Use
  Company Number: US-TAKEDA-2018TUS021614

PATIENT
  Age: 76 Year
  Sex: Female

DRUGS (1)
  1. PONATINIB [Suspect]
     Active Substance: PONATINIB
     Indication: ACUTE LYMPHOCYTIC LEUKAEMIA
     Dosage: 30 MG, QD
     Route: 048
     Dates: start: 201806

REACTIONS (4)
  - Skin ulcer [Unknown]
  - Pyrexia [Unknown]
  - Death [Fatal]
  - Stomatitis [Unknown]

NARRATIVE: CASE EVENT DATE: 201807
